FAERS Safety Report 6928236-6 (Version None)
Quarter: 2010Q3

REPORT INFORMATION
  Report Type: 
  Country: None (occurrence: None)
  Receive Date: 20100817
  Receipt Date: 20100809
  Transmission Date: 20110219
  Serious: Yes (Hospitalization)
  Sender: FDA-Public Use
  Company Number: TH-ROCHE-717929

PATIENT
  Sex: Female

DRUGS (21)
  1. TOCILIZUMAB [Suspect]
     Indication: RHEUMATOID ARTHRITIS
     Dosage: AS PER PROTOCOL FORM REPORTED AS INJECTABLE.
     Route: 042
     Dates: start: 20060831
  2. TOCILIZUMAB [Suspect]
     Dosage: DOSE LEVEL: 8 MG/KG
     Route: 042
     Dates: start: 20071120, end: 20071120
  3. TOCILIZUMAB [Suspect]
     Dosage: DOSE LEVEL: 8 MG/KG
     Route: 042
     Dates: start: 20071220, end: 20071220
  4. TOCILIZUMAB [Suspect]
     Dosage: DOSE LEVEL: 8 MG/KG
     Route: 042
     Dates: start: 20080117, end: 20080117
  5. TOCILIZUMAB [Suspect]
     Route: 042
     Dates: start: 20080214, end: 20080313
  6. TOCILIZUMAB [Suspect]
     Dosage: FORM: INFUSION
     Route: 042
     Dates: end: 20100729
  7. TOCILIZUMAB [Suspect]
     Dosage: THE PATIENT WAS PREVIOUSLY ENROLLED IN WA18063.
     Route: 042
  8. METHOTREXATE [Suspect]
     Indication: RHEUMATOID ARTHRITIS
     Dosage: FREQUENCY REPORTED AS QS
     Route: 048
  9. AZATHIOPRINE [Suspect]
     Indication: RHEUMATOID ARTHRITIS
     Route: 048
  10. PREDNISOLONE [Suspect]
     Indication: RHEUMATOID ARTHRITIS
     Route: 048
  11. CHLOROQUINE PHOSPHATE [Concomitant]
     Dosage: FREQUENCY REPORTED AS AD
     Route: 048
  12. LEFLUNOMIDE [Concomitant]
     Route: 048
  13. NAPROXEN [Concomitant]
     Dosage: FREQUENCY REPORTED AS PRN
     Route: 048
  14. TRAMADOL [Concomitant]
     Dosage: FREQUENCY REPORTED AS PRN
     Route: 048
  15. FOLIC ACID [Concomitant]
     Route: 048
  16. SIMVASTATIN [Concomitant]
     Route: 048
  17. HYDROCHLOROTHIAZIDE [Concomitant]
     Route: 048
  18. CALCIUM CARBONATE [Concomitant]
     Route: 048
  19. AMLODIPINE [Concomitant]
     Route: 048
  20. FERROUS SULFATE [Concomitant]
     Route: 048
  21. OMEPRAZOLE [Concomitant]
     Route: 048

REACTIONS (1)
  - PNEUMONIA [None]
